FAERS Safety Report 13006900 (Version 1)
Quarter: 2016Q4

REPORT INFORMATION
  Report Type: Spontaneous
  Country: AU (occurrence: AU)
  Receive Date: 20161207
  Receipt Date: 20161207
  Transmission Date: 20170207
  Serious: Yes (Other)
  Sender: FDA-Public Use
  Company Number: AU-PFIZER INC-2016564247

PATIENT
  Sex: Female

DRUGS (2)
  1. PANADEINE FORTE [Concomitant]
     Active Substance: ACETAMINOPHEN\CODEINE PHOSPHATE
     Indication: HEADACHE
  2. RELPAX [Suspect]
     Active Substance: ELETRIPTAN HYDROBROMIDE
     Indication: HEADACHE

REACTIONS (4)
  - Dysphemia [Unknown]
  - Movement disorder [Unknown]
  - Sensory disturbance [Unknown]
  - Cerebrovascular accident [Unknown]
